FAERS Safety Report 6167618-X (Version None)
Quarter: 2009Q2

REPORT INFORMATION
  Report Type: 
  Country: None (occurrence: None)
  Receive Date: 20090424
  Receipt Date: 20090423
  Transmission Date: 20091009
  Serious: Yes (Hospitalization)
  Sender: FDA-Public Use
  Company Number: US-ROXANE LABORATORIES, INC.-2009-RO-00403RO

PATIENT
  Age: 5 Month
  Sex: Female
  Weight: 7 kg

DRUGS (9)
  1. CYCLOPHOSPHAMIDE [Suspect]
     Dates: end: 20080816
  2. LESTAURTINIB [Suspect]
     Indication: ACUTE LYMPHOCYTIC LEUKAEMIA
     Route: 048
     Dates: start: 20080609
  3. DAUNORUBICIN HCL [Suspect]
     Dates: end: 20080814
  4. PEG-L-ASPARGINASE [Suspect]
     Dates: end: 20080816
  5. CYTARABINE [Concomitant]
  6. DEXAMETHASONE [Concomitant]
  7. HYDROCORTISONE [Concomitant]
  8. METHOTREXATE [Concomitant]
  9. VINCRISTINE [Concomitant]

REACTIONS (1)
  - UPPER RESPIRATORY TRACT INFECTION [None]
